FAERS Safety Report 20520087 (Version 1)
Quarter: 2022Q1

REPORT INFORMATION
  Report Type: Spontaneous
  Country: GH (occurrence: GH)
  Receive Date: 20220225
  Receipt Date: 20220225
  Transmission Date: 20220423
  Serious: Yes (Death)
  Sender: FDA-Public Use
  Company Number: GH-PFIZER INC-202200304069

PATIENT
  Age: 1 Year
  Sex: Male
  Weight: 11 kg

DRUGS (6)
  1. MEROPENEM [Suspect]
     Active Substance: MEROPENEM
     Indication: Sepsis
     Dosage: 440 MG, 3X/DAY
     Dates: start: 20220211, end: 20220214
  2. MEROPENEM [Suspect]
     Active Substance: MEROPENEM
     Indication: Multiple organ dysfunction syndrome
     Dosage: 440 MG, 3 X/DAY
     Dates: start: 20220215
  3. MEROPENEM [Suspect]
     Active Substance: MEROPENEM
     Indication: Adenovirus infection
  4. METRONIDAZOLE [Suspect]
     Active Substance: METRONIDAZOLE
     Indication: Pneumonia
     Dosage: 100 MG, 3X/DAY
     Route: 042
     Dates: start: 20220206
  5. METRONIDAZOLE [Suspect]
     Active Substance: METRONIDAZOLE
     Indication: Anaemia
     Dosage: 85 MG 3X/DAY
     Route: 042
     Dates: start: 20220209
  6. METRONIDAZOLE [Suspect]
     Active Substance: METRONIDAZOLE
     Indication: Meningitis

REACTIONS (1)
  - Hypertensive crisis [Fatal]
